FAERS Safety Report 5502519-9 (Version None)
Quarter: 2007Q4

REPORT INFORMATION
  Report Type: 
  Country: None (occurrence: None)
  Receive Date: 20071030
  Receipt Date: 20071026
  Transmission Date: 20080405
  Serious: Yes (Other)
  Sender: FDA-Public Use
  Company Number: US-BOEHRINGER INGELHEIM PHARMACEUTICALS, INC.-2007-BP-18864PF

PATIENT
  Sex: Female
  Weight: 104 kg

DRUGS (11)
  1. SPIRIVA [Suspect]
     Indication: CHRONIC OBSTRUCTIVE PULMONARY DISEASE
     Route: 055
  2. CHANTIX [Suspect]
     Indication: EX-SMOKER
     Route: 048
     Dates: start: 20070707
  3. STEROID [Suspect]
     Indication: ARTHRALGIA
  4. ADVAIR DISKUS 100/50 [Suspect]
     Indication: ASTHMA
     Route: 055
  5. CHOLINE MAGNESIUM TRISALICYLATE [Suspect]
     Indication: PAIN
     Dates: end: 20070101
  6. NIASPAN [Suspect]
     Indication: BLOOD CHOLESTEROL
  7. ASPIRIN [Concomitant]
  8. METHOTREXATE [Concomitant]
     Indication: ARTHRITIS
  9. ALBUTEROL [Concomitant]
     Indication: DYSPNOEA
  10. TRAMADOL HCL [Concomitant]
     Indication: PAIN
     Dates: start: 20070101
  11. BENADRYL [Concomitant]
     Dates: start: 20070101

REACTIONS (15)
  - ABNORMAL DREAMS [None]
  - AGITATION [None]
  - BURNING SENSATION [None]
  - CHEST PAIN [None]
  - COUGH [None]
  - DRUG INTERACTION [None]
  - DYSPNOEA [None]
  - FEELING ABNORMAL [None]
  - INCREASED APPETITE [None]
  - INJECTION SITE IRRITATION [None]
  - MYALGIA [None]
  - OSTEOARTHRITIS [None]
  - POSTNASAL DRIP [None]
  - PROTEINURIA [None]
  - WEIGHT DECREASED [None]
